FAERS Safety Report 7546937-6 (Version None)
Quarter: 2011Q2

REPORT INFORMATION
  Report Type: 
  Country: None (occurrence: None)
  Receive Date: 20110614
  Receipt Date: 20110531
  Transmission Date: 20111010
  Serious: Yes (Hospitalization, Other)
  Sender: FDA-Public Use
  Company Number: AU-CELGENEUS-008-20785-11031638

PATIENT
  Sex: Female
  Weight: 66 kg

DRUGS (6)
  1. THALOMID [Suspect]
     Indication: MULTIPLE MYELOMA
     Dosage: 200 MILLIGRAM
     Route: 048
     Dates: start: 20100922, end: 20110314
  2. DEXAMETHASONE [Concomitant]
     Route: 065
     Dates: start: 20100901, end: 20110128
  3. ZOMETA [Concomitant]
     Dosage: 4 MILLIGRAM
     Route: 065
     Dates: start: 20100901
  4. FLECAINIDE ACETATE [Concomitant]
     Indication: ATRIAL FIBRILLATION
     Route: 048
  5. WARFARIN SODIUM [Concomitant]
     Indication: ATRIAL FIBRILLATION
     Dosage: 4 - 4.5 MG
     Route: 065
     Dates: start: 20100601
  6. ALKERAN [Concomitant]
     Route: 065
     Dates: start: 20100901, end: 20110128

REACTIONS (6)
  - PARAESTHESIA [None]
  - PYREXIA [None]
  - DIARRHOEA [None]
  - NEUTROPENIA [None]
  - CARDIAC FLUTTER [None]
  - PNEUMONIA [None]
